FAERS Safety Report 23808987 (Version 2)
Quarter: 2024Q2

REPORT INFORMATION
  Report Type: Spontaneous
  Country: GB (occurrence: GB)
  Receive Date: 20240502
  Receipt Date: 20240603
  Transmission Date: 20240716
  Serious: Yes (Hospitalization, Other)
  Sender: FDA-Public Use
  Company Number: GB-MYLANLABS-2024M1001040

PATIENT
  Age: 64 Year
  Sex: Male

DRUGS (1)
  1. CLOZARIL [Suspect]
     Active Substance: CLOZAPINE
     Indication: Schizophrenia
     Dosage: UNK
     Route: 048
     Dates: start: 20170908, end: 20240423

REACTIONS (5)
  - Seizure [Unknown]
  - Pneumonia aspiration [Unknown]
  - Thrombocytopenia [Unknown]
  - Leukocytosis [Unknown]
  - Neutrophilia [Unknown]

NARRATIVE: CASE EVENT DATE: 20240102
